FAERS Safety Report 17556519 (Version 1)
Quarter: 2020Q1

REPORT INFORMATION
  Report Type: Spontaneous
  Country: BE (occurrence: BE)
  Receive Date: 20200318
  Receipt Date: 20200318
  Transmission Date: 20200409
  Serious: Yes (Other)
  Sender: FDA-Public Use
  Company Number: NVSC2020BE070710

PATIENT
  Sex: Female
  Weight: 63.5 kg

DRUGS (1)
  1. CARBOPLATIN. [Suspect]
     Active Substance: CARBOPLATIN
     Indication: BONE MARROW FAILURE
     Dosage: UNK
     Route: 065
     Dates: start: 20180919, end: 20181123

REACTIONS (3)
  - Malignant neoplasm progression [Unknown]
  - Thrombocytopenia [Unknown]
  - Neutropenia [Unknown]

NARRATIVE: CASE EVENT DATE: 20181003
